FAERS Safety Report 14092913 (Version 1)
Quarter: 2017Q4

REPORT INFORMATION
  Report Type: Report from Study
  Country: CN (occurrence: CN)
  Receive Date: 20171016
  Receipt Date: 20171016
  Transmission Date: 20180321
  Serious: Yes (Death)
  Sender: FDA-Public Use
  Company Number: CN-PFIZER INC-2017417096

PATIENT

DRUGS (1)
  1. CYTARABINE. [Suspect]
     Active Substance: CYTARABINE
     Indication: ACUTE MYELOID LEUKAEMIA
     Dosage: UNK, 2X/DAY (100 TO 150 MG/M2, Q12 H, FOR 6 DOSES IN EACH CYCLE AND TOTAL OF 2 TO 6 CYCLES)

REACTIONS (2)
  - Septic shock [Fatal]
  - Bone marrow failure [Fatal]
